FAERS Safety Report 8909333 (Version 1)
Quarter: 2012Q4

REPORT INFORMATION
  Report Type: Spontaneous
  Country: US (occurrence: None)
  Receive Date: 20121102
  Receipt Date: 20121102
  Transmission Date: 20130627
  Serious: Yes (Other)
  Sender: FDA-Public Use
  Company Number: 2012033699

PATIENT
  Age: 66 Year
  Sex: Female
  Weight: 83.46 kg

DRUGS (39)
  1. HIZENTRA [Suspect]
     Indication: IMMUNODEFICIENCY COMMON VARIABLE
     Dosage: (6 g 1x/week, in 2 sites over 1 hour Subcutaneous)
     Route: 058
     Dates: start: 20121016, end: 20121016
  2. ACETAMINOPHEN (PARACETAMOL),ACETYLSAL ACID,CAFFEINE CITRATE [Concomitant]
  3. DIPHENHYDRAMINE (DIPHENHYDRAMINE) [Concomitant]
  4. LIDOCAINE (LIDOCAINE) [Concomitant]
  5. EPIPEN (EPINEPHRINE) [Concomitant]
  6. CLONIDINE (CLONIDINE) [Concomitant]
  7. ZOLPIDEM (ZOLPIDEM) [Concomitant]
  8. DOCUSATE (DOCUSATE) [Concomitant]
  9. NYSTATIN (NYSTATIN) [Concomitant]
  10. SOOTHE HYDRATION (ALL OTHER NON-THERAPEUTIC PRODUCTS) [Concomitant]
  11. HYDROCORTISONE (HYDROCORTISONE) [Concomitant]
  12. IRON (IRON) [Concomitant]
  13. FUROSEMIDE (FUROSEMIDE) [Concomitant]
  14. TRAVATAN (TRAVOPROST) [Concomitant]
  15. PATANOL (OLOPATADINE HYDROCHLORIDE) [Concomitant]
  16. BENEFIBER (CYAMOPSIS TETRAGONOLOBA GUM) [Concomitant]
  17. LYRICA (PREGABALIN) [Concomitant]
  18. NASACORT (TRIAMCINOLONE ACETONIDE) [Concomitant]
  19. TEKTURNA (ALISKIREN) [Concomitant]
  20. GABAPENTIN (GABAPENTIN) [Concomitant]
  21. BUDESONIDE (BUDESONIDE) [Concomitant]
  22. METOPROLOL (METOPROLOL) [Concomitant]
  23. MOBIC (MELOXICAM) [Concomitant]
  24. KLOR CON (POTASSIUM CHLORIDE) [Concomitant]
  25. FEXOFENADINE (FEXOFENADINE) [Concomitant]
  26. TRANDOLAPRIL (TRANDOLAPRIL) [Concomitant]
  27. VERAPAMIL (VERAPAMIL) [Concomitant]
  28. ADVAIR (SERETIDE /01420901/) [Concomitant]
  29. OMEPRAZOLE (OMEPRAZOLE) [Concomitant]
  30. COLCRYS (COLCHICINE) [Concomitant]
  31. LORTAB (LORTAB /01744401/) [Concomitant]
  32. ALBUTEROL (SALBUTAMOL) [Concomitant]
  33. DEXILANT (DEXLANSOPRAZOLE) (ALL OTHER THERAPEUTIC PRODUCTS) [Concomitant]
  34. SINGULAIR (MONTELUKAST) [Concomitant]
  35. MIRALAX (MACROGOL) [Concomitant]
  36. THEOPHYLLINE (THEOPHYLLINE) [Concomitant]
  37. MICARDIS (TELMISARTAN) [Concomitant]
  38. XANAX (ALPRAZOLAM) [Concomitant]
  39. LIPITOR (ATORVASTATIN CALCIUM) [Concomitant]

REACTIONS (1)
  - Hypertension [None]
